FAERS Safety Report 9175327 (Version 1)
Quarter: 2013Q1

REPORT INFORMATION
  Report Type: Spontaneous
  Country: US (occurrence: US)
  Receive Date: 20130320
  Receipt Date: 20130320
  Transmission Date: 20140127
  Serious: No
  Sender: FDA-Public Use
  Company Number: US-ASTRAZENECA-2013SE13830

PATIENT
  Age: 63 Year
  Sex: Female
  Weight: 65.8 kg

DRUGS (5)
  1. PULMICORT FLEXHALER [Suspect]
     Indication: COUGH
     Dosage: 180 MCG BID
     Route: 055
     Dates: start: 20130221
  2. PULMICORT FLEXHALER [Suspect]
     Indication: COUGH
     Dosage: 180 MCG, ONLY ONE PUFF
     Route: 055
  3. SYMBICORT  PMDI [Suspect]
     Indication: ASTHMA
     Dosage: NOT ASKED UNK
     Route: 055
  4. ALBUTEROL [Concomitant]
  5. ADVAIR [Concomitant]
     Dates: start: 2010

REACTIONS (7)
  - Influenza [Unknown]
  - Torticollis [Unknown]
  - Bronchitis [Recovered/Resolved with Sequelae]
  - Cough [Unknown]
  - Circumstance or information capable of leading to medication error [Unknown]
  - Off label use [Unknown]
  - Intentional drug misuse [Unknown]
